FAERS Safety Report 9406160 (Version 3)
Quarter: 2014Q3

REPORT INFORMATION
  Report Type: Spontaneous
  Country: FR (occurrence: FR)
  Receive Date: 20130717
  Receipt Date: 20140801
  Transmission Date: 20150326
  Serious: Yes (Hospitalization, Other)
  Sender: FDA-Public Use
  Company Number: FR-VERTEX PHARMACEUTICALS INC-2013-008026

PATIENT
  Age: 51 Year
  Sex: Male
  Weight: 85 kg

DRUGS (10)
  1. PEGASYS [Suspect]
     Active Substance: PEGINTERFERON ALFA-2A
     Indication: HEPATITIS C
     Dosage: 180 ?G, QW
     Route: 058
     Dates: start: 20110920, end: 2012
  2. KARDEGIC [Suspect]
     Active Substance: ASPIRIN LYSINE
     Indication: CARDIOMYOPATHY
     Dosage: 75 MG, QD
     Route: 065
     Dates: start: 2009
  3. XYZALL [Suspect]
     Active Substance: LEVOCETIRIZINE DIHYDROCHLORIDE
     Indication: RASH
     Dosage: 5 MG, QD
     Route: 065
     Dates: end: 20120118
  4. INCIVO [Suspect]
     Active Substance: TELAPREVIR
     Indication: HEPATITIS C
     Dosage: 750 MG, TID, TABLET
     Route: 048
     Dates: start: 20110920, end: 20111213
  5. NEORECORMON [Suspect]
     Active Substance: ERYTHROPOIETIN
     Indication: ANAEMIA
     Dosage: UNK, QW
     Route: 065
     Dates: start: 20111025
  6. RAMIPRIL. [Suspect]
     Active Substance: RAMIPRIL
     Indication: ISCHAEMIC CARDIOMYOPATHY
     Dosage: 10 MG, QD
     Route: 065
     Dates: start: 2009
  7. CRESTOR [Suspect]
     Active Substance: ROSUVASTATIN CALCIUM
     Indication: CARDIOMYOPATHY
     Dosage: 5 MG, QD
     Route: 065
     Dates: start: 2009
  8. COPEGUS [Suspect]
     Active Substance: RIBAVIRIN
     Indication: HEPATITIS C
     Dosage: 600 MG, BID
     Route: 048
     Dates: start: 20110920, end: 20120821
  9. FEXOFENADINE [Suspect]
     Active Substance: FEXOFENADINE\FEXOFENADINE HYDROCHLORIDE
     Indication: RASH
     Dosage: 2 DF, QD
     Route: 065
     Dates: start: 20111214
  10. CARDENSIEL [Suspect]
     Active Substance: BISOPROLOL FUMARATE
     Indication: CARDIOMYOPATHY
     Dosage: 5 MG, QD
     Route: 065
     Dates: start: 2009

REACTIONS (3)
  - Angina pectoris [Recovered/Resolved]
  - Hypertriglyceridaemia [Recovered/Resolved]
  - Syncope [Unknown]

NARRATIVE: CASE EVENT DATE: 20120118
